FAERS Safety Report 7564153-9 (Version None)
Quarter: 2011Q2

REPORT INFORMATION
  Report Type: 
  Country: None (occurrence: None)
  Receive Date: 20110622
  Receipt Date: 20110616
  Transmission Date: 20111010
  Serious: Yes (Other)
  Sender: FDA-Public Use
  Company Number: US-PFIZER INC-2008066586

PATIENT
  Sex: Female

DRUGS (11)
  1. MEDROXYPROGESTERONE ACETATE [Suspect]
     Indication: HORMONE REPLACEMENT THERAPY
     Dosage: 2.5 MG, UNK
     Dates: start: 20040404, end: 20050801
  2. PROVERA [Suspect]
     Indication: HORMONE REPLACEMENT THERAPY
     Dosage: 2.5 MG, UNK
     Route: 048
     Dates: start: 19970830, end: 19970930
  3. PREMARIN [Suspect]
     Dosage: 0.3 MG, UNK
     Route: 048
     Dates: start: 19970830, end: 19970930
  4. PROVERA [Suspect]
     Dosage: 2.5 MG, UNK
     Route: 048
     Dates: start: 20020828, end: 20030711
  5. PREMARIN [Suspect]
     Dosage: 0.625 MG, UNK
     Route: 048
     Dates: start: 20020828, end: 20030711
  6. PREMPRO [Suspect]
     Dosage: 0.625/2.5 MG
     Route: 048
     Dates: start: 19991124, end: 20020828
  7. PREMPRO [Suspect]
     Dosage: 0.625/2.5 MG
     Route: 048
     Dates: start: 20040720, end: 20050902
  8. PREMARIN [Suspect]
     Indication: HORMONE REPLACEMENT THERAPY
     Dosage: 0.625 MG, UNK
     Route: 048
     Dates: start: 19970830, end: 19970930
  9. PREMPRO [Suspect]
     Dosage: 0.625/2.5 MG
     Route: 048
     Dates: start: 19970930, end: 19991011
  10. PREMARIN [Suspect]
     Dosage: 0.3 MG, UNK
     Route: 048
     Dates: start: 20020828, end: 20030711
  11. PREMPRO [Suspect]
     Indication: HORMONE REPLACEMENT THERAPY
     Dosage: 0.625/2.5 MG
     Route: 048
     Dates: start: 19950701, end: 19970830

REACTIONS (1)
  - BREAST CANCER FEMALE [None]
